FAERS Safety Report 7740201-8 (Version None)
Quarter: 2011Q3

REPORT INFORMATION
  Report Type: 
  Country: None (occurrence: None)
  Receive Date: 20110909
  Receipt Date: 20110909
  Transmission Date: 20111222
  Serious: Yes (Other)
  Sender: FDA-Public Use
  Company Number: None

PATIENT
  Sex: Female
  Weight: 60.781 kg

DRUGS (1)
  1. OXYCODONE AND ACETAMINOPHEN [Suspect]
     Indication: COMPLEX REGIONAL PAIN SYNDROME
     Dosage: 1-2 TABLETS
     Route: 048
     Dates: start: 20110713, end: 20110716

REACTIONS (5)
  - PRODUCT SUBSTITUTION ISSUE [None]
  - MALAISE [None]
  - PAIN [None]
  - CONDITION AGGRAVATED [None]
  - WITHDRAWAL SYNDROME [None]
